FAERS Safety Report 8098194-2 (Version None)
Quarter: 2012Q1

REPORT INFORMATION
  Report Type: 
  Country: None (occurrence: None)
  Receive Date: 20120128
  Receipt Date: 20110809
  Transmission Date: 20120608
  Serious: No
  Sender: FDA-Public Use
  Company Number: US-ABBOTT-11P-163-0845125-00

PATIENT
  Sex: Female
  Weight: 59.02 kg

DRUGS (2)
  1. HUMIRA [Suspect]
     Indication: ANKYLOSING SPONDYLITIS
     Dosage: N
     Dates: start: 20080101, end: 20090101
  2. HUMIRA [Suspect]
     Dates: start: 20100101

REACTIONS (5)
  - RASH PRURITIC [None]
  - RASH [None]
  - WEIGHT INCREASED [None]
  - RASH PAPULAR [None]
  - ALLERGY TO PLANTS [None]
